FAERS Safety Report 9106458 (Version 2)
Quarter: 2013Q1

REPORT INFORMATION
  Report Type: Spontaneous
  Country: BE (occurrence: BE)
  Receive Date: 20130221
  Receipt Date: 20130313
  Transmission Date: 20140127
  Serious: Yes (Death, Hospitalization, Other)
  Sender: FDA-Public Use
  Company Number: PHHY2013BE016236

PATIENT
  Age: 85 Year
  Sex: Male

DRUGS (1)
  1. ACLASTA [Suspect]
     Indication: OSTEOPOROSIS
     Dosage: 5 MG, UNK
     Route: 042
     Dates: start: 20120109

REACTIONS (3)
  - General physical health deterioration [Fatal]
  - Diplegia [Fatal]
  - Back disorder [Unknown]
